FAERS Safety Report 14252948 (Version 2)
Quarter: 2018Q1

REPORT INFORMATION
  Report Type: Spontaneous
  Country: US (occurrence: US)
  Receive Date: 20171205
  Receipt Date: 20180226
  Transmission Date: 20180508
  Serious: Yes (Other)
  Sender: FDA-Public Use
  Company Number: US-AKORN PHARMACEUTICALS-2017AKN01397

PATIENT
  Age: 20 Year
  Sex: Female

DRUGS (2)
  1. MYORISAN [Suspect]
     Active Substance: ISOTRETINOIN
     Dosage: 30 MG, 1X/DAY
     Dates: start: 20171020, end: 20171114
  2. UNSPECIFIED BIRTH CONTROL PILLS [Suspect]
     Active Substance: UNSPECIFIED INGREDIENT

REACTIONS (3)
  - Exposure during pregnancy [Recovered/Resolved]
  - Off label use [Recovered/Resolved]
  - Abortion induced [Recovered/Resolved]

NARRATIVE: CASE EVENT DATE: 2017
